FAERS Safety Report 9425607 (Version 1)
Quarter: 2013Q3

REPORT INFORMATION
  Report Type: Spontaneous
  Country: US (occurrence: US)
  Receive Date: 20130729
  Receipt Date: 20130729
  Transmission Date: 20140515
  Serious: No
  Sender: FDA-Public Use
  Company Number: US-MYLANLABS-2013S1008702

PATIENT
  Age: 72 Year
  Sex: Female
  Weight: 63.5 kg

DRUGS (2)
  1. LEVOTHYROXINE SODIUM TABLETS, USP [Suspect]
     Indication: HYPOTHYROIDISM
     Route: 048
     Dates: start: 20121024
  2. LOSARTAN POTASSIUM TABLETS USP 50 MG [Suspect]
     Route: 048

REACTIONS (2)
  - Coeliac disease [Not Recovered/Not Resolved]
  - Unevaluable event [Not Recovered/Not Resolved]
